FAERS Safety Report 21106215 (Version 3)
Quarter: 2022Q4

REPORT INFORMATION
  Report Type: Report from Study
  Country: AR (occurrence: AR)
  Receive Date: 20220720
  Receipt Date: 20221006
  Transmission Date: 20230113
  Serious: Yes (Hospitalization)
  Sender: FDA-Public Use
  Company Number: AR-AMGEN-ARGSL2021077514

PATIENT
  Age: 4 Year
  Sex: Female

DRUGS (1)
  1. NPLATE [Suspect]
     Active Substance: ROMIPLOSTIM
     Indication: Immune thrombocytopenia
     Dosage: UNK
     Route: 065
     Dates: start: 20210511

REACTIONS (7)
  - Influenza [Unknown]
  - Platelet count decreased [Not Recovered/Not Resolved]
  - Platelet count increased [Unknown]
  - Vomiting [Recovered/Resolved]
  - Headache [Recovered/Resolved]
  - Respiratory tract infection [Unknown]
  - Feeling abnormal [Recovered/Resolved]

NARRATIVE: CASE EVENT DATE: 20210501
